FAERS Safety Report 15322476 (Version 2)
Quarter: 2018Q4

REPORT INFORMATION
  Report Type: Report from Study
  Country: US (occurrence: US)
  Receive Date: 20180827
  Receipt Date: 20181117
  Transmission Date: 20190204
  Serious: Yes (Death)
  Sender: FDA-Public Use
  Company Number: PHEH2018US034821

PATIENT
  Sex: Female
  Weight: 47.2 kg

DRUGS (2)
  1. AFINITOR [Suspect]
     Active Substance: EVEROLIMUS
     Indication: UTERINE CANCER
  2. AFINITOR [Suspect]
     Active Substance: EVEROLIMUS
     Indication: OVARIAN CANCER
     Dosage: 10 MG, QD (ONCE DAILY)
     Route: 048

REACTIONS (2)
  - Ovarian cancer [Fatal]
  - Malignant neoplasm progression [Fatal]
